FAERS Safety Report 17195652 (Version 1)
Quarter: 2019Q4

REPORT INFORMATION
  Report Type: Report from Study
  Country: AU (occurrence: AU)
  Receive Date: 20191224
  Receipt Date: 20191224
  Transmission Date: 20200122
  Serious: Yes (Death, Hospitalization, Other)
  Sender: FDA-Public Use
  Company Number: AU-BRISTOL-MYERS SQUIBB COMPANY-BMS-2019-100451

PATIENT
  Age: 54 Year
  Sex: Male

DRUGS (1)
  1. NIVOLUMAB [Suspect]
     Active Substance: NIVOLUMAB
     Indication: MALIGNANT MELANOMA
     Dosage: 240 MILLIGRAM, Q2WK
     Route: 065

REACTIONS (5)
  - Malignant neoplasm progression [Unknown]
  - Headache [Unknown]
  - Death [Fatal]
  - Symptom recurrence [Unknown]
  - Vomiting [Unknown]

NARRATIVE: CASE EVENT DATE: 20191127
